FAERS Safety Report 4664545-1 (Version None)
Quarter: 2005Q2

REPORT INFORMATION
  Report Type: 
  Country: None (occurrence: None)
  Receive Date: 20050518
  Receipt Date: 20031007
  Transmission Date: 20051028
  Serious: Yes (Hospitalization)
  Sender: FDA-Public Use
  Company Number: 1593

PATIENT
  Age: 69 Year
  Sex: Male

DRUGS (5)
  1. MELPHALAN [Suspect]
     Indication: MULTIPLE MYELOMA
     Dosage: 400MG CUMULATIVE DOSE
     Route: 042
     Dates: start: 20030724, end: 20030724
  2. THALIDOMIDE [Suspect]
     Indication: MULTIPLE MYELOMA
     Route: 048
     Dates: start: 20030205, end: 20030406
  3. GABAPENTIN [Concomitant]
  4. DIFLUCAN [Concomitant]
  5. ATENOLOL [Concomitant]

REACTIONS (9)
  - CLOSTRIDIUM DIFFICILE TOXIN TEST POSITIVE [None]
  - CULTURE STOOL NEGATIVE [None]
  - DIARRHOEA [None]
  - DIZZINESS [None]
  - FEBRILE NEUTROPENIA [None]
  - FOLLICULITIS [None]
  - PALPITATIONS [None]
  - SYNCOPE [None]
  - VERTIGO [None]
